FAERS Safety Report 17223997 (Version 1)
Quarter: 2020Q1

REPORT INFORMATION
  Report Type: Spontaneous
  Country: DK (occurrence: DK)
  Receive Date: 20200102
  Receipt Date: 20200102
  Transmission Date: 20200409
  Serious: Yes (Hospitalization)
  Sender: FDA-Public Use
  Company Number: DK-TEVA-2019-DK-1160188

PATIENT
  Age: 60 Year
  Sex: Female
  Weight: 68 kg

DRUGS (6)
  1. EVEROLIMUS. [Suspect]
     Active Substance: EVEROLIMUS
     Dosage: 5 MG, QD
     Route: 048
     Dates: start: 20170310, end: 20170821
  2. TEMODAL [Suspect]
     Active Substance: TEMOZOLOMIDE
     Indication: PRODUCT USED FOR UNKNOWN INDICATION
     Dosage: 185 MG UNK (DAY 1 TO 7 AND 15 TO 21)
     Route: 048
     Dates: start: 20171024
  3. TEMODAL [Suspect]
     Active Substance: TEMOZOLOMIDE
     Dosage: 185 MG (DAY 1 TO 7 AND 15 TO 21)
     Route: 048
     Dates: start: 20170310, end: 20170925
  4. EVEROLIMUS. [Suspect]
     Active Substance: EVEROLIMUS
     Indication: GASTROENTEROPANCREATIC NEUROENDOCRINE TUMOUR DISEASE
     Dosage: 5 MILLIGRAM DAILY; 5 MG, QD
     Route: 048
     Dates: start: 20171024
  5. TEMODAL [Suspect]
     Active Substance: TEMOZOLOMIDE
     Dosage: 185 MG, (DAY 1 TO 7 AND 15 TO 21))
     Route: 048
     Dates: start: 20160819, end: 20170210
  6. EVEROLIMUS. [Suspect]
     Active Substance: EVEROLIMUS
     Dosage: 5 MG, QD
     Route: 048
     Dates: start: 20160819, end: 20170216

REACTIONS (4)
  - Infection [Recovered/Resolved]
  - Abdominal pain [Recovered/Resolved]
  - Infection [Recovered/Resolved]
  - Infection [Recovered/Resolved]

NARRATIVE: CASE EVENT DATE: 20170216
